FAERS Safety Report 8907158 (Version 1)
Quarter: 2012Q4

REPORT INFORMATION
  Report Type: 
  Country: US (occurrence: US)
  Receive Date: 20121114
  Receipt Date: 20121114
  Transmission Date: 20130627
  Serious: Yes (Other)
  Sender: FDA-Public Use
  Company Number: US-BAYER-2012-117413

PATIENT
  Sex: Female

DRUGS (1)
  1. MIRENA [Suspect]
     Indication: CONTRACEPTION
     Dosage: 20 mcg/24hr, CONT
     Route: 015
     Dates: start: 201104

REACTIONS (9)
  - Genital haemorrhage [None]
  - Device dislocation [None]
  - Pregnancy with contraceptive device [None]
  - Amenorrhoea [None]
  - Acne [None]
  - Mood swings [None]
  - Vaginal discharge [None]
  - Haematoma [None]
  - Drug ineffective [None]
